FAERS Safety Report 26175024 (Version 1)
Quarter: 2025Q4

REPORT INFORMATION
  Report Type: Spontaneous
  Country: GB (occurrence: GB)
  Receive Date: 20251218
  Receipt Date: 20251218
  Transmission Date: 20260118
  Serious: Yes (Other)
  Sender: TEVA
  Company Number: None

PATIENT
  Age: 27 Year
  Sex: Female

DRUGS (1)
  1. PROPYLTHIOURACIL [Suspect]
     Active Substance: PROPYLTHIOURACIL
     Indication: Graves^ disease

REACTIONS (6)
  - Pyrexia [Unknown]
  - Headache [Unknown]
  - Muscle spasms [Unknown]
  - Chills [Unknown]
  - Feeling cold [Unknown]
  - Myalgia [Unknown]
